FAERS Safety Report 5453691-0 (Version None)
Quarter: 2007Q3

REPORT INFORMATION
  Report Type: 
  Country: None (occurrence: None)
  Receive Date: 20070917
  Receipt Date: 20070905
  Transmission Date: 20080115
  Serious: Yes (Death)
  Sender: FDA-Public Use
  Company Number: SE-NOVOPROD-260015

PATIENT

DRUGS (6)
  1. NOVOLOG MIX 70/30 [Suspect]
     Indication: INSULIN-REQUIRING TYPE II DIABETES MELLITUS
     Dosage: 12 IU, QD
     Dates: start: 20061219
  2. SIMVASTEROL [Concomitant]
     Dosage: 20 MG, QD
  3. NITROMEX [Concomitant]
     Dosage: .25 MG, QD
  4. TRIATEC [Concomitant]
     Dosage: 5 MG, QD
  5. SPIRONOLAKTON [Concomitant]
     Dosage: 25 MG, QD
  6. TROMBYL [Concomitant]
     Dosage: 75 MG, QD

REACTIONS (1)
  - MYOCARDIAL INFARCTION [None]
